FAERS Safety Report 24990956 (Version 1)
Quarter: 2025Q1

REPORT INFORMATION
  Report Type: Spontaneous
  Country: US (occurrence: None)
  Receive Date: 20250220
  Receipt Date: 20250220
  Transmission Date: 20250409
  Serious: No
  Sender: FDA-CTU
  Company Number: None

PATIENT
  Age: 89 Year
  Sex: Male
  Weight: 95.3 kg

DRUGS (1)
  1. DARZALEX FASPRO [Suspect]
     Active Substance: DARATUMUMAB\HYALURONIDASE-FIHJ

REACTIONS (4)
  - Chills [None]
  - Blood pressure increased [None]
  - Tachycardia [None]
  - Anaphylactic reaction [None]

NARRATIVE: CASE EVENT DATE: 20250211
